FAERS Safety Report 6910643 (Version 27)
Quarter: 2013Q4

REPORT INFORMATION
  Report Type: Spontaneous
  Country: US (occurrence: US)
  Receive Date: 20090216
  Receipt Date: 20131017
  Transmission Date: 20140711
  Serious: Yes (Hospitalization, Other)
  Sender: FDA-Public Use
  Company Number: PHEH2009US01429

PATIENT
  Age: 84 Year
  Sex: Male
  Weight: 82.54 kg

DRUGS (19)
  1. ZOMETA [Suspect]
     Indication: METASTASES TO BONE
     Dosage: 4 MG, QMO
     Dates: start: 200306
  2. CASODEX [Concomitant]
     Dosage: 50 MG, QD
     Dates: start: 200306
  3. DETROL [Concomitant]
     Dosage: 5 MG, QD
  4. ALTACE [Concomitant]
     Dosage: 10 MG, QD
  5. MEGACE [Concomitant]
     Dosage: 40 MG, QD
  6. PRILOSEC [Concomitant]
     Dosage: 20 MG, QD
  7. ASPIRIN ^BAYER^ [Concomitant]
     Dosage: 81 MG, QD
  8. OXYBUTYNIN HYDROCHLORIDE [Concomitant]
     Dosage: 5 MG, TID
     Route: 048
  9. FLAGYL [Concomitant]
     Dosage: 500 MG, Q8H
     Route: 048
  10. CALTRATE [Concomitant]
     Dosage: 600 MG, QD
     Route: 048
  11. HEPARIN [Concomitant]
     Dosage: 5000 IU, Q8H
     Route: 058
  12. DAKINS [Concomitant]
     Route: 061
  13. LEVOFLOXACIN [Concomitant]
     Dosage: 500 MG, QD
     Route: 048
  14. PHENERGAN [Concomitant]
  15. FAMOTIDINE [Concomitant]
     Dosage: 20 MG, BID
  16. ALBUTEROL [Concomitant]
  17. LISINOPRIL [Concomitant]
  18. ACIPHEX [Concomitant]
  19. ELIDEL [Concomitant]

REACTIONS (182)
  - Cellulitis [Unknown]
  - Orthostatic hypotension [Recovered/Resolved]
  - Osteoarthritis [Unknown]
  - Osteonecrosis of jaw [Unknown]
  - Pain in jaw [Unknown]
  - Bone disorder [Recovering/Resolving]
  - Bone loss [Unknown]
  - Mouth ulceration [Unknown]
  - Oedema mouth [Unknown]
  - Oral discomfort [Unknown]
  - Wound dehiscence [Unknown]
  - Glossodynia [Unknown]
  - Biopsy bone [Unknown]
  - Exostosis [Unknown]
  - Osteomyelitis [Unknown]
  - Tooth infection [Unknown]
  - Asthenia [Unknown]
  - Dyspnoea [Unknown]
  - Diarrhoea [Unknown]
  - Dizziness [Unknown]
  - Swelling face [Recovered/Resolved]
  - Weight decreased [Unknown]
  - Abscess [Unknown]
  - Gingival swelling [Unknown]
  - Periodontitis [Unknown]
  - Gastritis [Unknown]
  - Abdominal pain upper [Unknown]
  - Diverticulum intestinal [Unknown]
  - Large intestine polyp [Unknown]
  - Gastric polyps [Unknown]
  - Haematochezia [Unknown]
  - Dysphagia [Unknown]
  - Cholelithiasis [Unknown]
  - Dermoid cyst [Unknown]
  - Actinomycosis [Unknown]
  - Erythema [Recovered/Resolved]
  - Oral cavity fistula [Unknown]
  - Oral disorder [Unknown]
  - Streptococcal infection [Unknown]
  - Drug intolerance [Unknown]
  - Nausea [Unknown]
  - Vomiting [Unknown]
  - Dehydration [Unknown]
  - Hiatus hernia [Unknown]
  - Oesophageal stenosis [Unknown]
  - Haemorrhoids [Unknown]
  - Decreased appetite [Recovering/Resolving]
  - Anaemia [Unknown]
  - Bundle branch block left [Unknown]
  - Left atrial dilatation [Unknown]
  - Mitral valve incompetence [Unknown]
  - Chest pain [Unknown]
  - Palpitations [Unknown]
  - Aortic valve incompetence [Unknown]
  - Aneurysm [Unknown]
  - Headache [Unknown]
  - Sinus disorder [Unknown]
  - Constipation [Unknown]
  - Dysuria [Unknown]
  - Haematuria [Unknown]
  - Urinary incontinence [Unknown]
  - Rhinitis allergic [Unknown]
  - Hypovolaemia [Unknown]
  - Balance disorder [Unknown]
  - Primary sequestrum [Unknown]
  - Purulent discharge [Unknown]
  - Movement disorder [Unknown]
  - Prostatic specific antigen increased [Unknown]
  - Renal cyst [Unknown]
  - Arteriosclerosis [Unknown]
  - Intervertebral disc degeneration [Unknown]
  - Prostate cancer [Unknown]
  - Malignant neoplasm progression [Unknown]
  - Emphysema [Unknown]
  - Hypertension [Unknown]
  - Exposed bone in jaw [Unknown]
  - Gingival bleeding [Unknown]
  - Tooth loss [Unknown]
  - Pulmonary granuloma [Unknown]
  - Scoliosis [Unknown]
  - Vitamin D deficiency [Unknown]
  - Hypercholesterolaemia [Unknown]
  - Deafness [Unknown]
  - Oedema peripheral [Unknown]
  - Neuropathy peripheral [Unknown]
  - Squamous cell carcinoma of skin [Unknown]
  - Second primary malignancy [Unknown]
  - Chronic obstructive pulmonary disease [Unknown]
  - Parkinson^s disease [Unknown]
  - Cerebral atrophy [Unknown]
  - Syncope [Unknown]
  - Fall [Unknown]
  - Laceration [Unknown]
  - Tinnitus [Unknown]
  - Visual acuity reduced [Unknown]
  - Trismus [Unknown]
  - Arthritis [Unknown]
  - Metastases to spine [Unknown]
  - Eyelid disorder [Unknown]
  - Cardiomegaly [Unknown]
  - Interstitial lung disease [Unknown]
  - Atelectasis [Unknown]
  - Chest discomfort [Unknown]
  - Bowel movement irregularity [Unknown]
  - Tachycardia [Unknown]
  - Pulmonary congestion [Unknown]
  - Lymphangiectasia [Unknown]
  - Fungal oesophagitis [Unknown]
  - Left ventricular hypertrophy [Unknown]
  - Mitral valve calcification [Unknown]
  - Tricuspid valve incompetence [Unknown]
  - Angina pectoris [Unknown]
  - Failure to thrive [Unknown]
  - Osteopenia [Unknown]
  - Kyphosis [Unknown]
  - Vertigo [Unknown]
  - Muscle spasms [Unknown]
  - Acute prerenal failure [Unknown]
  - Dyskinesia oesophageal [Unknown]
  - Facial wasting [Unknown]
  - Oral candidiasis [Unknown]
  - Basal cell carcinoma [Unknown]
  - Rash pruritic [Unknown]
  - Pulmonary hypertension [Unknown]
  - Pulmonary valve incompetence [Unknown]
  - Oesophageal pain [Unknown]
  - Ecchymosis [Recovering/Resolving]
  - Splenic calcification [Unknown]
  - Splenic granuloma [Unknown]
  - Nasal congestion [Unknown]
  - Nasal septum deviation [Unknown]
  - Keratoacanthoma [Unknown]
  - Head injury [Unknown]
  - Carotid sinus syndrome [Unknown]
  - Arrhythmia [Unknown]
  - Arthralgia [Unknown]
  - Compression fracture [Unknown]
  - Angiopathy [Unknown]
  - Intervertebral disc space narrowing [Unknown]
  - Intervertebral disc disorder [Unknown]
  - Urinary tract infection [Unknown]
  - Diaphragmatic hernia [Unknown]
  - Myocardial ischaemia [Unknown]
  - Benign prostatic hyperplasia [Unknown]
  - Gastrointestinal haemorrhage [Unknown]
  - Oesophageal mass [Unknown]
  - Pancreatic atrophy [Unknown]
  - Chronic respiratory disease [Unknown]
  - Diabetes mellitus [Unknown]
  - Left ventricular dysfunction [Unknown]
  - Metastases to bone [Unknown]
  - Lymphoma [Unknown]
  - Dysplasia [Unknown]
  - Dyskinesia [Unknown]
  - Sick sinus syndrome [Unknown]
  - Bradycardia [Unknown]
  - Atrioventricular block second degree [Unknown]
  - Osteoporosis [Unknown]
  - Aortic valve sclerosis [Unknown]
  - Tooth abscess [Unknown]
  - Urinary retention [Unknown]
  - Pharyngitis [Unknown]
  - Oral pain [Unknown]
  - Vitamin B12 deficiency [Unknown]
  - Gait disturbance [Unknown]
  - Mass [Unknown]
  - Osteosclerosis [Unknown]
  - Musculoskeletal discomfort [Unknown]
  - Contusion [Unknown]
  - Anisocytosis [Unknown]
  - Poikilocytosis [Unknown]
  - Osteoradionecrosis [Unknown]
  - Cardiomyopathy [Unknown]
  - Cardiac failure congestive [Unknown]
  - Gingival pain [Unknown]
  - Tardive dyskinesia [Unknown]
  - Bruxism [Unknown]
  - Memory impairment [Unknown]
  - Cachexia [Unknown]
  - Tremor [Unknown]
  - Abdominal discomfort [Unknown]
  - Hypoaesthesia [Unknown]
